FAERS Safety Report 8631186 (Version 3)
Quarter: 2013Q2

REPORT INFORMATION
  Report Type: Spontaneous
  Country: DE (occurrence: DE)
  Receive Date: 20120622
  Receipt Date: 20130419
  Transmission Date: 20140414
  Serious: Yes (Hospitalization)
  Sender: FDA-Public Use
  Company Number: DE-ASTRAZENECA-2012SE39926

PATIENT
  Age: 54 Year
  Sex: Female

DRUGS (16)
  1. SEROQUEL [Suspect]
     Dosage: 500-800 MG
     Route: 048
     Dates: start: 20110301, end: 20110703
  2. SEROQUEL [Suspect]
     Route: 048
     Dates: start: 20110704, end: 20111107
  3. LYRICA [Suspect]
     Route: 048
     Dates: start: 20111027, end: 20111107
  4. CYMBALTA [Concomitant]
     Route: 048
     Dates: start: 2006, end: 2010
  5. CYMBALTA [Concomitant]
     Dosage: 30-60 MG
     Route: 048
     Dates: start: 20110810, end: 20110817
  6. CYMBALTA [Concomitant]
     Route: 048
     Dates: start: 20110818, end: 20110831
  7. CYMBALTA [Concomitant]
     Route: 048
     Dates: start: 20110901, end: 20111107
  8. ZOLPIDEM [Concomitant]
     Route: 048
     Dates: start: 20110427, end: 20111107
  9. PANTOZOL [Concomitant]
     Route: 048
     Dates: start: 20110126
  10. CLIOVELLE [Concomitant]
     Route: 048
     Dates: start: 20110126, end: 20111107
  11. VALDOXAN [Concomitant]
     Route: 048
     Dates: start: 20110126, end: 20110208
  12. VALDOXAN [Concomitant]
     Route: 048
     Dates: start: 20110209, end: 20110331
  13. VALDOXAN [Concomitant]
     Route: 048
     Dates: start: 20110401
  14. DOMINAL [Concomitant]
     Route: 048
     Dates: start: 2006, end: 2010
  15. DOMINAL [Concomitant]
     Dosage: 120-160 MG
     Route: 048
     Dates: start: 20110421, end: 20111104
  16. DOMINAL [Concomitant]
     Route: 048
     Dates: start: 20111212

REACTIONS (3)
  - Dermatomyositis [Unknown]
  - Compartment syndrome [Unknown]
  - Rhabdomyolysis [Recovered/Resolved with Sequelae]
